FAERS Safety Report 6160284-9 (Version None)
Quarter: 2009Q2

REPORT INFORMATION
  Report Type: 
  Country: None (occurrence: None)
  Receive Date: 20090416
  Receipt Date: 20090416
  Transmission Date: 20091009
  Serious: No
  Sender: FDA-Public Use
  Company Number: None

PATIENT
  Age: 31 Year
  Sex: Female

DRUGS (1)
  1. OXYCODONE AND ACETAMINOPHEN [Suspect]
     Indication: PAIN
     Dosage: PO
     Route: 048
     Dates: start: 20090330, end: 20090414

REACTIONS (3)
  - DRUG EFFECT INCREASED [None]
  - MALAISE [None]
  - PRODUCT SUBSTITUTION ISSUE [None]
